FAERS Safety Report 4538379-2 (Version None)
Quarter: 2004Q4

REPORT INFORMATION
  Report Type: 
  Country: None (occurrence: None)
  Receive Date: 20041223
  Receipt Date: 20040916
  Transmission Date: 20050328
  Serious: No
  Sender: FDA-Public Use
  Company Number: US-JNJFOC-20040906391

PATIENT
  Age: 18 Year
  Sex: Female
  Weight: 47.6277 kg

DRUGS (2)
  1. ORTHO EVRA [Suspect]
     Indication: VAGINAL HAEMORRHAGE
     Dosage: 1 DOSE(S), 1 IN 1 WEEK TRANSDERMAL
     Route: 062
     Dates: start: 20040609
  2. FEOSAL (FERROUS SULFATE) [Concomitant]

REACTIONS (2)
  - HAEMOGLOBIN DECREASED [None]
  - VAGINAL HAEMORRHAGE [None]
